FAERS Safety Report 7231529-9 (Version None)
Quarter: 2011Q1

REPORT INFORMATION
  Report Type: 
  Country: None (occurrence: None)
  Receive Date: 20110118
  Receipt Date: 20110110
  Transmission Date: 20110831
  Serious: Yes (Hospitalization, Other)
  Sender: FDA-Public Use
  Company Number: US-JNJFOC-20110102403

PATIENT
  Sex: Female
  Weight: 83.92 kg

DRUGS (7)
  1. METOPROLOL [Concomitant]
     Indication: BLOOD PRESSURE
     Route: 048
  2. IMURAN [Concomitant]
     Indication: RHEUMATOID ARTHRITIS
     Route: 048
  3. NORVASC [Concomitant]
     Indication: BLOOD PRESSURE
     Route: 048
  4. ESTRACE [Concomitant]
     Indication: BLOOD OESTROGEN
     Route: 048
  5. MOBIC [Concomitant]
     Indication: RHEUMATOID ARTHRITIS
     Route: 048
  6. REMICADE [Suspect]
     Indication: RHEUMATOID ARTHRITIS
     Route: 042
  7. SYNTHROID [Concomitant]
     Indication: THYROID DISORDER
     Route: 048

REACTIONS (4)
  - PAIN IN JAW [None]
  - CARDIAC FAILURE CONGESTIVE [None]
  - BACK PAIN [None]
  - CORONARY ARTERY OCCLUSION [None]
